FAERS Safety Report 19194091 (Version 10)
Quarter: 2024Q2

REPORT INFORMATION
  Report Type: Spontaneous
  Country: US (occurrence: US)
  Receive Date: 20210429
  Receipt Date: 20240503
  Transmission Date: 20240716
  Serious: Yes (Other)
  Sender: FDA-Public Use
  Company Number: US-PFIZER INC-2021338646

PATIENT
  Age: 53 Year
  Sex: Male
  Weight: 88.45 kg

DRUGS (55)
  1. SOMAVERT [Suspect]
     Active Substance: PEGVISOMANT
     Indication: Acromegaly
     Dosage: 30 MG, ALTERNATE DAY (EVERY OTHER DAY)
     Dates: start: 201809
  2. SOMAVERT [Suspect]
     Active Substance: PEGVISOMANT
     Indication: Gigantism
     Dosage: 30 MG, ALTERNATE DAY (30MG SQ QOD)
     Route: 058
     Dates: start: 20181010
  3. ALPHA LIPOIC ACID [Concomitant]
     Active Substance: .ALPHA.-LIPOIC ACID
     Dosage: UNK (POW)
  4. ALPRAZOLAM [Concomitant]
     Active Substance: ALPRAZOLAM
     Dosage: UNK
  5. AMLODIPINE [Concomitant]
     Active Substance: AMLODIPINE BESYLATE
     Dosage: UNK
  6. ARMODAFINIL [Concomitant]
     Active Substance: ARMODAFINIL
     Dosage: UNK
  7. ASPIRIN [Concomitant]
     Active Substance: ASPIRIN
     Dosage: UNK (81 MG EC)
  8. ATORVASTATIN [Concomitant]
     Active Substance: ATORVASTATIN
     Dosage: UNK
  9. BACLOFEN [Concomitant]
     Active Substance: BACLOFEN
     Dosage: UNK
  10. CALCIUM CITRATE [Concomitant]
     Active Substance: CALCIUM CITRATE
     Dosage: UNK
  11. CICLOPIROX [Concomitant]
     Active Substance: CICLOPIROX\TOCOPHEROL
     Dosage: UNK
  12. CLONAZEPAM [Concomitant]
     Active Substance: CLONAZEPAM
     Dosage: UNK
  13. CLONIDINE [Concomitant]
     Active Substance: CLONIDINE
     Dosage: UNK (DIS 0.1/24HR)
  14. COENZYME Q10 [Concomitant]
     Active Substance: DIETARY SUPPLEMENT\UBIDECARENONE
     Dosage: UNK (10)
  15. OMEGA-3 FATTY ACIDS [Concomitant]
     Active Substance: OMEGA-3 FATTY ACIDS
     Dosage: UNK
  16. CYANOCOBALAMIN [Concomitant]
     Active Substance: CYANOCOBALAMIN
     Dosage: UNK
  17. DEXAMETHASONE [Concomitant]
     Active Substance: DEXAMETHASONE
     Dosage: UNK
  18. PRASTERONE [Concomitant]
     Active Substance: PRASTERONE
     Dosage: UNK (POW)
  19. DILTIAZEM [Concomitant]
     Active Substance: DILTIAZEM
     Dosage: UNK (120 MG ER)
  20. DOXAZOSIN [Concomitant]
     Active Substance: DOXAZOSIN MESYLATE
     Dosage: UNK
  21. ENBREL [Concomitant]
     Active Substance: BENZYL ALCOHOL\ETANERCEPT
     Dosage: UNK
  22. EPIPEN [Concomitant]
     Active Substance: EPINEPHRINE
     Dosage: UNK
  23. FEXOFENADINE [Concomitant]
     Active Substance: FEXOFENADINE HYDROCHLORIDE
     Dosage: UNK
  24. FLOVENT HFA [Concomitant]
     Active Substance: FLUTICASONE PROPIONATE
     Dosage: UNK (AER)
  25. FLUTICASONE [Concomitant]
     Active Substance: FLUTICASONE
     Dosage: UNK
  26. FUROSEMIDE [Concomitant]
     Active Substance: FUROSEMIDE
     Dosage: UNK
  27. HYDROCORTISONE ACETATE [Concomitant]
     Active Substance: HYDROCORTISONE ACETATE
     Dosage: UNK
  28. HYDROCORTISONE ACETATE [Concomitant]
     Active Substance: HYDROCORTISONE ACETATE
     Dosage: UNK
  29. HYDROMORPHONE [Concomitant]
     Active Substance: HYDROMORPHONE
     Dosage: UNK
  30. LEVOTHYROXINE [Concomitant]
     Active Substance: LEVOTHYROXINE\LEVOTHYROXINE SODIUM
     Dosage: UNK
  31. LIOTHYRONINE [Concomitant]
     Active Substance: LIOTHYRONINE
     Dosage: UNK
  32. MELATONIN [Concomitant]
     Active Substance: MELATONIN
     Dosage: UNK
  33. METHYLPHENIDATE [Concomitant]
     Active Substance: METHYLPHENIDATE
     Dosage: UNK
  34. NIACIN [Concomitant]
     Active Substance: NIACIN
     Dosage: UNK
  35. OLOPATADINE [Concomitant]
     Active Substance: OLOPATADINE
     Dosage: UNK
  36. ONDANSETRON [Concomitant]
     Active Substance: ONDANSETRON
     Dosage: UNK
  37. PANTOPRAZOLE [Concomitant]
     Active Substance: PANTOPRAZOLE
     Dosage: UNK
  38. PHYTOSTEROLINS [Concomitant]
     Dosage: UNK
  39. POTASSIUM CHLORIDE [Concomitant]
     Active Substance: POTASSIUM CHLORIDE
     Dosage: UNK (POW)
  40. PROAIR HFA [Concomitant]
     Active Substance: ALBUTEROL SULFATE
     Dosage: UNK (AER)
  41. PROMETHAZINE [Concomitant]
     Active Substance: PROMETHAZINE HYDROCHLORIDE
     Dosage: UNK
  42. RANITIDINE [Concomitant]
     Active Substance: RANITIDINE
     Dosage: UNK
  43. REVATIO [Concomitant]
     Active Substance: SILDENAFIL CITRATE
     Dosage: UNK
  44. SUMATRIPTAN [Concomitant]
     Active Substance: SUMATRIPTAN
     Dosage: UNK
  45. TESTOSTERONE [TESTOSTERONE CIPIONATE] [Concomitant]
     Dosage: UNK
  46. VITAMIN D3 [Concomitant]
     Active Substance: CHOLECALCIFEROL
     Dosage: 2000 IU
  47. ZALEPLON [Concomitant]
     Active Substance: ZALEPLON
     Dosage: 10 MG
  48. ALBUTEROL SULFATE [Concomitant]
     Active Substance: ALBUTEROL SULFATE
  49. DEXAMETHASONE PHOSPHATE [Concomitant]
     Active Substance: DEXAMETHASONE PHOSPHATE
  50. FLUTICASONE [Concomitant]
     Active Substance: FLUTICASONE
     Dosage: UNK (SPR)
  51. GABAPENTIN [Concomitant]
     Active Substance: GABAPENTIN
  52. NARCAN [Concomitant]
     Active Substance: NALOXONE HYDROCHLORIDE
     Dosage: UNK (SPR)
  53. NEBIVOLOL [Concomitant]
     Active Substance: NEBIVOLOL
  54. RIZATRIPTAN [Concomitant]
     Active Substance: RIZATRIPTAN
  55. TADALAFIL [Concomitant]
     Active Substance: TADALAFIL

REACTIONS (5)
  - Calcinosis [Unknown]
  - Off label use [Unknown]
  - Product dose omission issue [Unknown]
  - Device use issue [Unknown]
  - Device delivery system issue [Unknown]

NARRATIVE: CASE EVENT DATE: 20180901
